FAERS Safety Report 9340945 (Version 3)
Quarter: 2014Q1

REPORT INFORMATION
  Report Type: Spontaneous
  Country: US (occurrence: US)
  Receive Date: 20130610
  Receipt Date: 20140320
  Transmission Date: 20141002
  Serious: Yes (Hospitalization)
  Sender: FDA-Public Use
  Company Number: US-B.I. PHARMACEUTICALS,INC./RIDGEFIELD-2013-BI-16261BP

PATIENT
  Sex: Female
  Weight: 68.04 kg

DRUGS (9)
  1. PRADAXA [Suspect]
     Indication: ISCHAEMIC HEART DISEASE PROPHYLAXIS
     Dosage: 300 MG
     Route: 065
     Dates: start: 20101116, end: 20111207
  2. PRADAXA [Suspect]
     Indication: CEREBROVASCULAR ACCIDENT PROPHYLAXIS
  3. COREG [Concomitant]
     Route: 065
     Dates: start: 201010
  4. DIGOXIN [Concomitant]
     Route: 065
     Dates: start: 201010
  5. TRIAMT/HCTZ [Concomitant]
     Route: 065
     Dates: start: 2010
  6. OMEPRAZOLE [Concomitant]
     Route: 065
     Dates: start: 2003
  7. ATACAND [Concomitant]
     Route: 065
     Dates: start: 2009
  8. ADVAIR [Concomitant]
     Route: 065
     Dates: start: 200907
  9. ASPIRIN [Concomitant]
     Dosage: 81 MG
     Route: 065

REACTIONS (1)
  - Gastrointestinal haemorrhage [Recovered/Resolved]
